FAERS Safety Report 18802986 (Version 2)
Quarter: 2021Q1

REPORT INFORMATION
  Report Type: Spontaneous
  Country: GB (occurrence: GB)
  Receive Date: 20210129
  Receipt Date: 20210211
  Transmission Date: 20210419
  Serious: Yes (Other)
  Sender: FDA-Public Use
  Company Number: GB-AUROBINDO-AUR-APL-2021-002795

PATIENT
  Age: 60 Year
  Sex: Female
  Weight: 65 kg

DRUGS (1)
  1. METRONIDAZOLE. [Suspect]
     Active Substance: METRONIDAZOLE
     Indication: TOOTH INFECTION
     Dosage: 400 MILLIGRAM
     Route: 048
     Dates: start: 20201108, end: 20201110

REACTIONS (4)
  - Pruritus [Unknown]
  - Vulvovaginal burning sensation [Recovered/Resolved with Sequelae]
  - Swelling [Unknown]
  - Blister [Unknown]

NARRATIVE: CASE EVENT DATE: 20201108
